FAERS Safety Report 7323323-5 (Version None)
Quarter: 2011Q1

REPORT INFORMATION
  Report Type: 
  Country: None (occurrence: None)
  Receive Date: 20110301
  Receipt Date: 20110222
  Transmission Date: 20110831
  Serious: Yes (Other)
  Sender: FDA-Public Use
  Company Number: US-SANOFI-AVENTIS-2011SA011677

PATIENT
  Age: 59 Year
  Sex: Female

DRUGS (6)
  1. LANTUS [Suspect]
     Dosage: DOSE:29 UNIT(S)
     Route: 058
  2. ASPIRIN [Concomitant]
  3. OPHTHALMOLOGICALS [Concomitant]
  4. VITAMIN B-12 [Concomitant]
  5. ANTIHYPERTENSIVES [Concomitant]
  6. CHOLESTEROL [Concomitant]

REACTIONS (4)
  - BLOOD GLUCOSE INCREASED [None]
  - GLAUCOMA [None]
  - PRODUCT QUALITY ISSUE [None]
  - CATARACT [None]
